FAERS Safety Report 10562341 (Version 1)
Quarter: 2014Q4

REPORT INFORMATION
  Report Type: Spontaneous
  Country: US (occurrence: None)
  Receive Date: 20141103
  Receipt Date: 20141103
  Transmission Date: 20150529
  Serious: No
  Sender: FDA-Public Use
  Company Number: None

PATIENT
  Age: 37 Year
  Sex: Female

DRUGS (1)
  1. SULFAMETHOXAZOLE-TRIMETHOPRIM (SMZ) [Suspect]
     Active Substance: SULFAMETHOXAZOLE\TRIMETHOPRIM
     Indication: ABSCESS
     Route: 048
     Dates: start: 20140811, end: 20140825

REACTIONS (4)
  - Hypotension [None]
  - Body temperature increased [None]
  - Blister [None]
  - Unresponsive to stimuli [None]

NARRATIVE: CASE EVENT DATE: 20140828
